FAERS Safety Report 22296948 (Version 2)
Quarter: 2023Q2

REPORT INFORMATION
  Report Type: Spontaneous
  Country: CA (occurrence: CA)
  Receive Date: 20230509
  Receipt Date: 20230511
  Transmission Date: 20230721
  Serious: Yes (Other)
  Sender: FDA-Public Use
  Company Number: CA-CELLTRION INC.-2023CA009519

PATIENT

DRUGS (5)
  1. INFLECTRA [Suspect]
     Active Substance: INFLIXIMAB-DYYB
     Indication: Crohn^s disease
     Dosage: 5 MG/KG, AT WEEKS 0, 2, 6 THEN EVERY 8 WEEKS
     Route: 042
     Dates: start: 20230415, end: 20230415
  2. INFLECTRA [Suspect]
     Active Substance: INFLIXIMAB-DYYB
     Indication: Crohn^s disease
     Dosage: 5 MG/KG, EVERY 8 WEEKS
     Route: 042
     Dates: start: 20230428
  3. PREDNISONE [Concomitant]
     Active Substance: PREDNISONE
     Dosage: 15 MG( ADVISED TO TAKE 5 CO PREDNISONE INSTEAD OF 3 X 2 DAYS NEXT.)
  4. PREDNISONE [Concomitant]
     Active Substance: PREDNISONE
     Dosage: 1 DF
  5. PANTOPRAZOLE SODIUM [Concomitant]
     Active Substance: PANTOPRAZOLE SODIUM
     Dosage: 1 DF

REACTIONS (19)
  - Anaphylactic shock [Recovered/Resolved]
  - Abscess [Unknown]
  - Blood pressure fluctuation [Not Recovered/Not Resolved]
  - Rash erythematous [Recovered/Resolved]
  - Erythema [Recovered/Resolved]
  - Pruritus [Recovered/Resolved]
  - Malaise [Recovered/Resolved]
  - Dyspnoea [Recovered/Resolved]
  - Paraesthesia [Recovered/Resolved]
  - Impaired driving ability [Recovered/Resolved]
  - Swelling face [Recovered/Resolved]
  - Hypoaesthesia [Recovered/Resolved]
  - Hypoaesthesia oral [Recovered/Resolved]
  - Swollen tongue [Recovered/Resolved]
  - Wheezing [Recovered/Resolved]
  - Slow response to stimuli [Recovered/Resolved]
  - Pain [Recovered/Resolved]
  - Oxygen saturation decreased [Recovering/Resolving]
  - Hypersensitivity [Recovered/Resolved]

NARRATIVE: CASE EVENT DATE: 20230428
